FAERS Safety Report 17971910 (Version 1)
Quarter: 2020Q3

REPORT INFORMATION
  Report Type: Spontaneous
  Country: IL (occurrence: IL)
  Receive Date: 20200702
  Receipt Date: 20200702
  Transmission Date: 20201103
  Serious: Yes (Other)
  Sender: FDA-Public Use
  Company Number: IL-TEVA-2020-IL-1795234

PATIENT
  Age: 51 Year

DRUGS (4)
  1. CARBOPLATIN. [Suspect]
     Active Substance: CARBOPLATIN
     Dates: start: 201906
  2. KEYTRUDA [Concomitant]
     Active Substance: PEMBROLIZUMAB
  3. ALIMTA [Concomitant]
     Active Substance: PEMETREXED DISODIUM
     Dates: start: 201906
  4. TAXOTERE [Concomitant]
     Active Substance: DOCETAXEL
     Dates: start: 202001

REACTIONS (1)
  - Metastases to central nervous system [Unknown]

NARRATIVE: CASE EVENT DATE: 202004
